FAERS Safety Report 8417654-5 (Version None)
Quarter: 2012Q2

REPORT INFORMATION
  Report Type: 
  Country: None (occurrence: None)
  Receive Date: 20120606
  Receipt Date: 20120529
  Transmission Date: 20120825
  Serious: Yes (Other)
  Sender: FDA-Public Use
  Company Number: JP-VERTEX PHARMACEUTICALS INC.-AE-2012-006172

PATIENT
  Age: 64 Year
  Sex: Male

DRUGS (12)
  1. PEGINTERFERON ALFA-2B [Concomitant]
     Route: 051
     Dates: start: 20120423, end: 20120501
  2. LOXONIN [Concomitant]
     Route: 048
     Dates: start: 20120220
  3. PEGINTERFERON ALFA-2B [Concomitant]
     Route: 051
     Dates: start: 20120507
  4. VOGLIBOSE [Concomitant]
     Route: 048
  5. FAMOTIDINE [Concomitant]
     Route: 048
     Dates: start: 20120220
  6. TELAVIC (TELAPREVIR) [Suspect]
     Indication: HEPATITIS C
     Route: 048
     Dates: start: 20120220, end: 20120514
  7. REBETOL [Concomitant]
     Indication: HEPATITIS C
     Route: 048
     Dates: start: 20120220, end: 20120305
  8. REBETOL [Concomitant]
     Route: 048
     Dates: start: 20120306
  9. PEGINTERFERON ALFA-2B [Concomitant]
     Indication: HEPATITIS C
     Route: 051
     Dates: start: 20120220, end: 20120416
  10. REBETOL [Concomitant]
     Route: 048
     Dates: start: 20120409
  11. GLUFAST [Concomitant]
     Route: 048
  12. UREPEARL [Concomitant]
     Route: 062

REACTIONS (1)
  - ERYTHEMA MULTIFORME [None]
